FAERS Safety Report 24468186 (Version 2)
Quarter: 2025Q3

REPORT INFORMATION
  Report Type: Report from Study
  Country: US (occurrence: US)
  Receive Date: 20241018
  Receipt Date: 20250803
  Transmission Date: 20251021
  Serious: Yes (Other)
  Sender: ALEXION PHARMACEUTICALS
  Company Number: US-ALXN-202410USA008756US

PATIENT
  Sex: Male

DRUGS (1)
  1. STRENSIQ [Suspect]
     Active Substance: ASFOTASE ALFA
     Route: 065

REACTIONS (10)
  - Deafness neurosensory [Unknown]
  - Arthralgia [Unknown]
  - Blood phosphorus increased [Unknown]
  - Blood sodium increased [Unknown]
  - Blood potassium increased [Unknown]
  - Blood urea decreased [Unknown]
  - Blood bilirubin decreased [Unknown]
  - Aspartate aminotransferase increased [Unknown]
  - Blood thyroid stimulating hormone increased [Unknown]
  - Temperature intolerance [Unknown]
